FAERS Safety Report 8226387-X (Version None)
Quarter: 2012Q1

REPORT INFORMATION
  Report Type: 
  Country: None (occurrence: None)
  Receive Date: 20120321
  Receipt Date: 20100926
  Transmission Date: 20120608
  Serious: Yes (Other)
  Sender: FDA-Public Use
  Company Number: PHHY2010SG06121

PATIENT
  Sex: Male

DRUGS (3)
  1. GLEEVEC [Suspect]
     Indication: GASTROINTESTINAL STROMAL TUMOUR
     Dosage: 400 MG, DAILY
     Route: 048
     Dates: start: 20040401
  2. GLEEVEC [Suspect]
     Dosage: 400 MG, DAILY
     Route: 048
     Dates: start: 20051201
  3. GLEEVEC [Suspect]
     Dosage: 20 MG,
     Route: 048

REACTIONS (6)
  - NEOPLASM MALIGNANT [None]
  - PYREXIA [None]
  - MOUTH ULCERATION [None]
  - HEPATIC NEOPLASM [None]
  - NEOPLASM PROGRESSION [None]
  - CHEST PAIN [None]
